FAERS Safety Report 10233069 (Version 1)
Quarter: 2014Q2

REPORT INFORMATION
  Report Type: Spontaneous
  Country: US (occurrence: US)
  Receive Date: 20140612
  Receipt Date: 20140612
  Transmission Date: 20141212
  Serious: No
  Sender: FDA-Public Use
  Company Number: US-PFIZER INC-2014157404

PATIENT
  Age: 59 Year
  Sex: Male
  Weight: 99.77 kg

DRUGS (5)
  1. SUTENT [Suspect]
     Indication: RENAL CELL CARCINOMA STAGE IV
     Dosage: 50 MG, 1X/DAY
     Route: 048
     Dates: start: 20131201
  2. VITAMIN D [Concomitant]
     Dosage: UNK
  3. XGEVA [Concomitant]
     Dosage: UNK
  4. PERIACTIN [Concomitant]
     Dosage: UNK
  5. PEPCID [Concomitant]
     Dosage: UNK

REACTIONS (6)
  - Headache [Recovered/Resolved]
  - Oral pain [Not Recovered/Not Resolved]
  - Gingival pain [Not Recovered/Not Resolved]
  - Glossodynia [Not Recovered/Not Resolved]
  - Hyperaesthesia [Not Recovered/Not Resolved]
  - Haemoglobin decreased [Unknown]
